FAERS Safety Report 4901309-5 (Version None)
Quarter: 2006Q1

REPORT INFORMATION
  Report Type: 
  Country: None (occurrence: None)
  Receive Date: 20060202
  Receipt Date: 20060118
  Transmission Date: 20060701
  Serious: Yes (Hospitalization, Other)
  Sender: FDA-Public Use
  Company Number: A-US2005-09577

PATIENT
  Age: 25 Year
  Sex: Female

DRUGS (9)
  1. TRACLEER [Suspect]
     Indication: PULMONARY HYPERTENSION
     Dosage: 125 MG, BID, ORAL; 62.5 MG, BID, ORAL
     Route: 048
     Dates: start: 20050106, end: 20050201
  2. TRACLEER [Suspect]
     Indication: PULMONARY HYPERTENSION
     Dosage: 125 MG, BID, ORAL; 62.5 MG, BID, ORAL
     Route: 048
     Dates: start: 20050201, end: 20050417
  3. TRACLEER [Suspect]
     Indication: PULMONARY HYPERTENSION
     Dosage: 125 MG, BID, ORAL; 62.5 MG, BID, ORAL
     Route: 048
     Dates: start: 20051001
  4. OXYGEN (OXYGEN) [Concomitant]
  5. VIAGRA [Concomitant]
  6. COUMADIN [Concomitant]
  7. DESLORATADINE (DESLORATADINE) [Concomitant]
  8. SINGULAIR [Concomitant]
  9. MOTRIN [Concomitant]

REACTIONS (6)
  - DRUG EXPOSURE DURING PREGNANCY [None]
  - ECLAMPSIA [None]
  - LABOUR INDUCTION [None]
  - PREGNANCY [None]
  - PREMATURE LABOUR [None]
  - RESPIRATORY FAILURE [None]
